FAERS Safety Report 24034784 (Version 1)
Quarter: 2024Q3

REPORT INFORMATION
  Report Type: Spontaneous
  Country: AU (occurrence: AU)
  Receive Date: 20240701
  Receipt Date: 20240701
  Transmission Date: 20241017
  Serious: Yes (Life-Threatening)
  Sender: CHEPLAPHARM
  Company Number: AU-CHEPLA-2024008188

PATIENT
  Age: 25 Year

DRUGS (6)
  1. OLANZAPINE [Suspect]
     Active Substance: OLANZAPINE
     Indication: Bipolar disorder
     Dosage: DAILY DOSE: 20 MILLIGRAM
     Route: 048
  2. OLANZAPINE [Suspect]
     Active Substance: OLANZAPINE
     Indication: Mania
     Dosage: DAILY DOSE: 20 MILLIGRAM
     Route: 048
  3. LITHIUM [Suspect]
     Active Substance: LITHIUM
     Indication: Toxicity to various agents
     Dosage: BID?DAILY DOSE: 900 MILLIGRAM
  4. LITHIUM [Suspect]
     Active Substance: LITHIUM
     Indication: Mania
     Dosage: BID?DAILY DOSE: 900 MILLIGRAM
  5. LITHIUM [Suspect]
     Active Substance: LITHIUM
     Indication: Bipolar disorder
     Dosage: BID?DAILY DOSE: 900 MILLIGRAM
  6. TESTOSTERONE [Concomitant]
     Active Substance: TESTOSTERONE
     Indication: Transgender hormonal therapy
     Route: 061

REACTIONS (2)
  - Catatonia [Recovered/Resolved]
  - Hypophagia [Recovered/Resolved]
